FAERS Safety Report 13673707 (Version 1)
Quarter: 2017Q2

REPORT INFORMATION
  Report Type: Spontaneous
  Country: US (occurrence: US)
  Receive Date: 20170621
  Receipt Date: 20170621
  Transmission Date: 20170830
  Serious: No
  Sender: FDA-Public Use
  Company Number: US-GLAXOSMITHKLINE-US2017092010

PATIENT
  Age: 50 Year
  Sex: Female

DRUGS (2)
  1. ABREVA [Suspect]
     Active Substance: DOCOSANOL
     Indication: ORAL HERPES
     Dosage: UNK UNK, BID
  2. ABREVA [Suspect]
     Active Substance: DOCOSANOL
     Dosage: UNK UNK, BID
     Dates: start: 20170606

REACTIONS (2)
  - Product quality issue [Unknown]
  - Inappropriate schedule of drug administration [Unknown]
